FAERS Safety Report 4464554-1 (Version None)
Quarter: 2004Q3

REPORT INFORMATION
  Report Type: 
  Country: None (occurrence: None)
  Receive Date: 20040929
  Receipt Date: 20040914
  Transmission Date: 20050211
  Serious: Yes (Hospitalization)
  Sender: FDA-Public Use
  Company Number: 200700

PATIENT
  Age: 48 Year
  Sex: Female

DRUGS (8)
  1. AVONEX [Suspect]
     Indication: MULTIPLE SCLEROSIS
     Dosage: 30 MCG QW IM
     Route: 030
     Dates: start: 20020131, end: 20031101
  2. AVONEX [Suspect]
     Indication: MULTIPLE SCLEROSIS
     Dosage: 30 MCG QW IM
     Route: 030
     Dates: start: 20031101
  3. CYTOMEL [Concomitant]
  4. DIAZEPAM [Concomitant]
  5. ZANTAC [Concomitant]
  6. LESCOL [Concomitant]
  7. SYNTHROID [Concomitant]
  8. REGLAN [Concomitant]

REACTIONS (2)
  - PAIN [None]
  - PANIC ATTACK [None]
